FAERS Safety Report 7354331-6 (Version None)
Quarter: 2011Q1

REPORT INFORMATION
  Report Type: 
  Country: None (occurrence: None)
  Receive Date: 20110316
  Receipt Date: 20110307
  Transmission Date: 20110831
  Serious: Yes (Hospitalization)
  Sender: FDA-Public Use
  Company Number: JP-SHIRE-CQT4-2011-00002

PATIENT
  Sex: Female
  Weight: 57.4 kg

DRUGS (19)
  1. THYRADIN S [Concomitant]
     Indication: AUTOIMMUNE THYROIDITIS
     Dosage: UNK UNK, UNKNOWN
     Route: 065
     Dates: start: 19820101
  2. METHYCOBAL [Concomitant]
     Indication: ARTERIOSCLEROSIS OBLITERANS
     Dosage: UNK UNK, UNKNOWN
     Route: 065
     Dates: start: 20090817
  3. ANAGRELIDE HCL [Suspect]
     Indication: ESSENTIAL THROMBOCYTHAEMIA
     Dosage: 1.5 MG IN THE MORNING AND 1.5 MG AT NIGHT
     Route: 048
     Dates: start: 20110301, end: 20110307
  4. SOFT SANTEAR [Concomitant]
     Indication: DRY EYE
     Dosage: UNK UNK, UNKNOWN
     Route: 065
     Dates: start: 20090101
  5. HYALEIN [Concomitant]
     Indication: DRY EYE
     Dosage: UNK UNK, UNKNOWN
     Route: 065
     Dates: start: 20090101
  6. COCARL [Concomitant]
     Indication: UPPER RESPIRATORY TRACT INFECTION
     Dosage: UNK UNK, UNKNOWN
     Route: 065
     Dates: start: 20110228
  7. ANAGRELIDE HCL [Suspect]
     Dosage: 1 MG IN THE MORNING AND 1.5 MG AT NIGHT
     Route: 048
     Dates: start: 20110228, end: 20110228
  8. ANAGRELIDE HCL [Suspect]
     Dosage: 1.5 MG, 1X/DAY:QD
     Route: 048
     Dates: start: 20110214, end: 20110220
  9. ANAGRELIDE HCL [Suspect]
     Dosage: 2 MG, 1X/DAY:QD
     Route: 048
     Dates: start: 20110221, end: 20110227
  10. MELBIN                             /00082702/ [Concomitant]
     Indication: DIABETES MELLITUS
     Dosage: UNK UNK, UNKNOWN
     Route: 065
     Dates: start: 20040927
  11. CONIEL [Concomitant]
     Indication: HYPERTENSION
     Dosage: UNK UNK, UNKNOWN
     Route: 065
     Dates: start: 20101227
  12. ANPLAG [Concomitant]
     Indication: ARTERIOSCLEROSIS OBLITERANS
     Dosage: UNK UNK, UNKNOWN
     Route: 065
     Dates: start: 20090817
  13. CRAVIT [Concomitant]
     Indication: UPPER RESPIRATORY TRACT INFECTION
     Dosage: UNK UNK, UNKNOWN
     Route: 065
     Dates: start: 20110228
  14. POPIYODON [Concomitant]
     Indication: UPPER RESPIRATORY TRACT INFECTION
     Dosage: UNK
     Route: 065
     Dates: start: 20110228
  15. ASPIRIN [Concomitant]
     Indication: THROMBOSIS PROPHYLAXIS
     Dosage: UNK UNK, UNKNOWN
     Route: 065
     Dates: start: 20051107
  16. HYDREA [Concomitant]
     Indication: ESSENTIAL THROMBOCYTHAEMIA
     Dosage: 500 MG, 1X/DAY:QD
     Route: 048
     Dates: start: 19990531, end: 20110207
  17. MUCOSTA [Concomitant]
     Indication: UPPER RESPIRATORY TRACT INFECTION
     Dosage: UNK UNK, UNKNOWN
     Route: 065
     Dates: start: 20110228
  18. ANAGRELIDE HCL [Suspect]
     Dosage: 1 MG, 1X/DAY:QD
     Route: 048
     Dates: start: 20110208, end: 20110213
  19. HUMALOG [Concomitant]
     Indication: DIABETES MELLITUS
     Dosage: UNK UNK, UNKNOWN
     Route: 065
     Dates: start: 20081027

REACTIONS (4)
  - ACCIDENTAL OVERDOSE [None]
  - UPPER RESPIRATORY TRACT INFECTION [None]
  - ALTERED STATE OF CONSCIOUSNESS [None]
  - ORTHOSTATIC HYPOTENSION [None]
